FAERS Safety Report 23520601 (Version 5)
Quarter: 2025Q4

REPORT INFORMATION
  Report Type: Spontaneous
  Country: US (occurrence: US)
  Receive Date: 20240214
  Receipt Date: 20251202
  Transmission Date: 20260118
  Serious: No
  Sender: BRISTOL-MYERS SQUIBB COMPANY
  Company Number: US-BRISTOL-MYERS SQUIBB COMPANY-2024-004923

PATIENT
  Age: 81 Year
  Sex: Female

DRUGS (3)
  1. POMALYST [Suspect]
     Active Substance: POMALIDOMIDE
     Indication: Plasma cell myeloma
     Route: 048
  2. POMALYST [Suspect]
     Active Substance: POMALIDOMIDE
     Dosage: STRENGTH:1MG
     Route: 048
  3. POMALYST [Suspect]
     Active Substance: POMALIDOMIDE
     Dosage: STRENGTH:1MG
     Route: 048

REACTIONS (3)
  - Product dose omission issue [Unknown]
  - White blood cell count decreased [Unknown]
  - Inappropriate schedule of product administration [Unknown]
